FAERS Safety Report 23390070 (Version 19)
Quarter: 2025Q4

REPORT INFORMATION
  Report Type: Spontaneous
  Country: CA (occurrence: CA)
  Receive Date: 20240111
  Receipt Date: 20251002
  Transmission Date: 20260117
  Serious: Yes (Hospitalization, Other)
  Sender: CELLTRION
  Company Number: CA-CELLTRION INC.-2024CA000521

PATIENT

DRUGS (15)
  1. INFLECTRA [Suspect]
     Active Substance: INFLIXIMAB-DYYB
     Indication: Crohn^s disease
     Dosage: 400 MG, 0, 2, 6, THEN EVERY 8 WEEKS
     Dates: start: 20190404, end: 20200909
  2. INFLECTRA [Suspect]
     Active Substance: INFLIXIMAB-DYYB
     Dosage: 400 MG, EVERY 4 WEEKS
     Dates: start: 20201027, end: 20210714
  3. INFLECTRA [Suspect]
     Active Substance: INFLIXIMAB-DYYB
     Dosage: 350 MG, 0, 2, 6, THEN EVERY 4 WEEKS
     Dates: start: 20231207
  4. INFLECTRA [Suspect]
     Active Substance: INFLIXIMAB-DYYB
     Dosage: 350 MG, AFTER 13 WEEKS AND 1 DAY (PRESCRIBED EVERY 4 WEEKS)
     Dates: start: 20240308
  5. INFLECTRA [Suspect]
     Active Substance: INFLIXIMAB-DYYB
     Dosage: 350 MG, EVERY 4 WEEKS
     Dates: start: 20240403
  6. INFLECTRA [Suspect]
     Active Substance: INFLIXIMAB-DYYB
     Dosage: 350 MG, AFTER 3 WEEKS AND 2 DAYS, (PRESCRIBED EVERY 4 WEEKS)
     Dates: start: 20240426
  7. INFLECTRA [Suspect]
     Active Substance: INFLIXIMAB-DYYB
     Dosage: 400 MG, EVERY 4 WEEKS (PRESCRIBED 350 MG, EVERY 4 WEEKS)
     Dates: start: 20240523
  8. INFLECTRA [Suspect]
     Active Substance: INFLIXIMAB-DYYB
     Dosage: 350 MG, AFTER 12 WEEKS AND 5 DAYS (EVERY 4 WEEKS)
     Dates: start: 20240820
  9. INFLECTRA [Suspect]
     Active Substance: INFLIXIMAB-DYYB
     Dosage: 350 MG, AFTER 6 WEEKS AND 1 DAY (EVERY 4 WEEKS)
     Dates: start: 20241002
  10. INFLECTRA [Suspect]
     Active Substance: INFLIXIMAB-DYYB
     Dosage: 350 MG, AFTER 4 WEEKS, (WEEK 0, 2, 6, THEN EVERY 4 WEEKS)
     Dates: start: 20241101
  11. INFLECTRA [Suspect]
     Active Substance: INFLIXIMAB-DYYB
     Dosage: 350 MG, 4 WEEKS, (WEEK 0, 2, 6, THEN EVERY 4 WEEKS)
     Dates: start: 20241129
  12. INFLECTRA [Suspect]
     Active Substance: INFLIXIMAB-DYYB
     Dosage: 350 MG AFTER 4 WEEKS 3 DAYS,(350 MG, 0, 2, 6, THEN EVERY 4 WEEKS)
     Dates: start: 20241230
  13. INFLECTRA [Suspect]
     Active Substance: INFLIXIMAB-DYYB
     Dosage: 350 MG (WEEK 0, 2, 6, THEN EVERY 4 WEEKS)
     Dates: start: 20250403
  14. INFLECTRA [Suspect]
     Active Substance: INFLIXIMAB-DYYB
     Dosage: 350 MG, 3 WEEKS AND 6 DAYS (WEEK 0, 2, 6, THEN EVERY 4 WEEKS)
     Dates: start: 20250430
  15. ALENDRONATE [Concomitant]
     Active Substance: ALENDRONATE SODIUM
     Dosage: 70 MG, WEEKLY

REACTIONS (15)
  - White blood cell count increased [Unknown]
  - Malaise [Unknown]
  - Bronchitis [Unknown]
  - Headache [Recovering/Resolving]
  - Knee arthroplasty [Unknown]
  - Faeces discoloured [Recovering/Resolving]
  - Condition aggravated [Not Recovered/Not Resolved]
  - Arthralgia [Not Recovered/Not Resolved]
  - Alopecia [Unknown]
  - Asthenia [Unknown]
  - Gait disturbance [Unknown]
  - Defaecation urgency [Recovered/Resolved]
  - Incorrect dose administered [Unknown]
  - Off label use [Unknown]
  - Inappropriate schedule of product administration [Unknown]

NARRATIVE: CASE EVENT DATE: 20230101
